FAERS Safety Report 9048854 (Version 1)
Quarter: 2013Q2

REPORT INFORMATION
  Report Type: Spontaneous
  Country: US (occurrence: None)
  Receive Date: 20130116
  Receipt Date: 20130405
  Transmission Date: 20140414
  Serious: Yes (Life-Threatening, Other)
  Sender: FDA-Public Use
  Company Number: 2013P1000305

PATIENT
  Age: 73 Year
  Sex: Female

DRUGS (4)
  1. MIDAZOLAM HCL [Suspect]
     Indication: SEDATION
     Route: 042
     Dates: start: 20121129, end: 20121130
  2. ASA [Concomitant]
  3. ZITHROMAX [Concomitant]
  4. WARFARIN [Concomitant]

REACTIONS (16)
  - Device malfunction [None]
  - Incorrect dose administered [None]
  - Fall [None]
  - Arthralgia [None]
  - Pulmonary embolism [None]
  - Deep vein thrombosis [None]
  - Atrial fibrillation [None]
  - Supraventricular tachycardia [None]
  - Renal failure [None]
  - Atrial flutter [None]
  - Retroperitoneal haematoma [None]
  - Respiratory failure [None]
  - Thrombocytopenia [None]
  - Transaminases increased [None]
  - Urinary tract infection enterococcal [None]
  - Cardiomyopathy [None]
